FAERS Safety Report 8758367 (Version 3)
Quarter: 2012Q4

REPORT INFORMATION
  Report Type: Spontaneous
  Country: FI (occurrence: None)
  Receive Date: 20120817
  Receipt Date: 20120906
  Transmission Date: 20130627
  Serious: Yes (Life-Threatening, Hospitalization, Other)
  Sender: FDA-Public Use
  Company Number: FK201202263

PATIENT
  Age: 38 Year
  Sex: Female

DRUGS (9)
  1. FUROSEMIDE [Suspect]
     Indication: OLIGURIA
     Dosage: 30 MG, Daily: Week of Pregnancy 27+6, Intravenous (not otherwise specified)
     Route: 042
  2. FUROSEMIDE [Suspect]
     Indication: OLIGURIA
     Dosage: 10 MG, Daily: Week of Pregnancy 28+0, Intravenous (not otherwise specified)
     Route: 042
  3. FUROSEMIDE [Suspect]
     Indication: OLIGURIA
     Dosage: 40 MG, Daily: Week of Pregnancy 28+1, Intravenous (not otherwise specified)
     Route: 042
  4. FUROSEMIDE [Suspect]
     Indication: OLIGURIA
     Dosage: 10 MG, Daily: Week of Pregnancy 28+2, Intravenous (not otherwise specified)
     Route: 042
  5. FUROSEMIDE [Suspect]
     Indication: OLIGURIA
     Dosage: 10 MG, Daily: Week of Pregnancy 28+3, Intravenous (not otherwise specified)
     Route: 042
  6. LABETALOL [Concomitant]
  7. PIVMECILLINAM (PIVMECILLINAM) [Concomitant]
  8. BETAMETASONE [Concomitant]
  9. NITROPRUSSIDE (NITROPRUSSIDE) [Concomitant]

REACTIONS (15)
  - Maternal exposure during pregnancy [None]
  - Pre-eclampsia [None]
  - Caesarean section [None]
  - Complication of pregnancy [None]
  - Haemolytic uraemic syndrome [None]
  - Alanine aminotransferase increased [None]
  - Disseminated intravascular coagulation [None]
  - Drug dose omission [None]
  - Premature separation of placenta [None]
  - Procedural haemorrhage [None]
  - Haemodialysis [None]
  - Blood creatinine increased [None]
  - HELLP syndrome [None]
  - Haemorrhage in pregnancy [None]
  - Placental insufficiency [None]
